FAERS Safety Report 7714902-1 (Version None)
Quarter: 2011Q3

REPORT INFORMATION
  Report Type: 
  Country: None (occurrence: None)
  Receive Date: 20110810
  Receipt Date: 20110708
  Transmission Date: 20111222
  Serious: No
  Sender: FDA-Public Use
  Company Number: 1000022106

PATIENT
  Age: 41 Year
  Sex: Male

DRUGS (4)
  1. HYDROCODONE/ACETAMINOPHEN (HYDROCODONE, ACETAMINOPEN) (HYDROCODONE, AC [Concomitant]
  2. SAVELLA [Suspect]
     Indication: FIBROMYALGIA
     Dosage: 12. 5 MG (12. 5 MG, 1 IN 1 D), ORAL; 25 MG (12.5 MG, 2 IN 1 D); ORAL 50 MG (25 MG, 2 IN 1 D), ORAL
     Route: 048
     Dates: start: 20110614, end: 20110101
  3. SAVELLA [Suspect]
     Indication: FIBROMYALGIA
     Dosage: 12. 5 MG (12. 5 MG, 1 IN 1 D), ORAL; 25 MG (12.5 MG, 2 IN 1 D); ORAL 50 MG (25 MG, 2 IN 1 D), ORAL
     Route: 048
     Dates: start: 20110101, end: 20110101
  4. SAVELLA [Suspect]
     Indication: FIBROMYALGIA
     Dosage: 12. 5 MG (12. 5 MG, 1 IN 1 D), ORAL; 25 MG (12.5 MG, 2 IN 1 D); ORAL 50 MG (25 MG, 2 IN 1 D), ORAL
     Route: 048
     Dates: start: 20110101, end: 20110707

REACTIONS (3)
  - DYSPNOEA [None]
  - HEART RATE INCREASED [None]
  - NEUROGENIC BLADDER [None]
